FAERS Safety Report 18531175 (Version 1)
Quarter: 2020Q4

REPORT INFORMATION
  Report Type: Report from Study
  Country: US (occurrence: US)
  Receive Date: 20201122
  Receipt Date: 20201122
  Transmission Date: 20210114
  Serious: Yes (Other)
  Sender: FDA-Public Use
  Company Number: US-UCBSA-2020046184

PATIENT
  Age: 63 Year
  Sex: Male

DRUGS (1)
  1. LEVETIRACETAM. [Suspect]
     Active Substance: LEVETIRACETAM
     Indication: PARTIAL SEIZURES
     Dosage: UNK
     Dates: start: 20200510, end: 20200903

REACTIONS (2)
  - Adverse drug reaction [Unknown]
  - Seizure [Unknown]

NARRATIVE: CASE EVENT DATE: 2020
